FAERS Safety Report 9607516 (Version 1)
Quarter: 2013Q4

REPORT INFORMATION
  Report Type: Spontaneous
  Country: US (occurrence: None)
  Receive Date: 20131008
  Receipt Date: 20131008
  Transmission Date: 20140711
  Serious: Yes (Disabling, Other)
  Sender: FDA-Public Use
  Company Number: None

PATIENT
  Age: 66 Year
  Sex: Female
  Weight: 74.84 kg

DRUGS (4)
  1. 2% XYLOCAINE DENTAL WITH EPINEPHRINE NOVOCOL PHARMACEUTICAL, CANADA [Suspect]
     Indication: DENTAL CARE
     Dates: start: 20120216, end: 20120802
  2. 2% XYLOCAINE DENTAL WITH EPINEPHRINE NOVOCOL PHARMACEUTICAL, CANADA [Suspect]
     Dates: start: 20120216, end: 20120802
  3. 2% XYLOCAINE DENTAL WITH EPINEPHRINE NOVOCOL PHARMACEUTICAL, CANADA [Suspect]
     Dates: start: 20120216, end: 20120802
  4. XYLOCAINE [Concomitant]

REACTIONS (10)
  - Paraesthesia [None]
  - Hypoaesthesia [None]
  - Pruritus [None]
  - Fatigue [None]
  - Depression [None]
  - Dysgeusia [None]
  - Drooling [None]
  - Tic [None]
  - Musculoskeletal stiffness [None]
  - Sensory disturbance [None]
